FAERS Safety Report 17087220 (Version 1)
Quarter: 2019Q4

REPORT INFORMATION
  Report Type: Spontaneous
  Country: BE (occurrence: BE)
  Receive Date: 20191128
  Receipt Date: 20191128
  Transmission Date: 20200122
  Serious: Yes (Death, Hospitalization, Other)
  Sender: FDA-Public Use
  Company Number: BE-ACCORD-161835

PATIENT
  Age: 67 Year
  Sex: Female

DRUGS (5)
  1. ACETYLSALICYLIC ACID [Suspect]
     Active Substance: ASPIRIN
     Indication: INTERMITTENT CLAUDICATION
     Route: 065
     Dates: start: 2005
  2. TACROLIMUS. [Suspect]
     Active Substance: TACROLIMUS
     Indication: IMMUNOSUPPRESSION
     Route: 065
     Dates: start: 2012
  3. DICLOFENAC [Suspect]
     Active Substance: DICLOFENAC
  4. AZATHIOPRINE. [Suspect]
     Active Substance: AZATHIOPRINE
     Indication: IMMUNOSUPPRESSION
     Dosage: 25 MG, QD
     Route: 065
  5. TACROLIMUS. [Suspect]
     Active Substance: TACROLIMUS
     Indication: IMMUNOSUPPRESSION
     Dosage: 50 MG, TID
     Route: 065
     Dates: start: 2012

REACTIONS (6)
  - Arthralgia [Unknown]
  - Complications of intestinal transplant [Fatal]
  - Shock [Unknown]
  - Graft loss [Unknown]
  - Contraindicated product administered [Unknown]
  - Renal impairment [Unknown]

NARRATIVE: CASE EVENT DATE: 2012
